FAERS Safety Report 4361878-3 (Version None)
Quarter: 2004Q2

REPORT INFORMATION
  Report Type: 
  Country: None (occurrence: None)
  Receive Date: 20040521
  Receipt Date: 20040329
  Transmission Date: 20050107
  Serious: No
  Sender: FDA-Public Use
  Company Number: US-GLAXOSMITHKLINE-A0504876A

PATIENT
  Age: 64 Year
  Sex: Female

DRUGS (6)
  1. WELLBUTRIN XL [Suspect]
     Indication: DEPRESSION
     Dosage: 300MG PER DAY
     Route: 048
     Dates: start: 20040301
  2. NEXIUM [Concomitant]
  3. IBUPROFEN [Concomitant]
  4. TYLENOL [Concomitant]
  5. PSEUDOEPHEDRINE HCL [Concomitant]
  6. TUMS [Concomitant]

REACTIONS (7)
  - BALANCE DISORDER [None]
  - HEADACHE [None]
  - LETHARGY [None]
  - MOOD ALTERED [None]
  - NAUSEA [None]
  - PALPITATIONS [None]
  - TREMOR [None]
